FAERS Safety Report 16813059 (Version 1)
Quarter: 2019Q3

REPORT INFORMATION
  Report Type: Spontaneous
  Country: SE (occurrence: SE)
  Receive Date: 20190916
  Receipt Date: 20190916
  Transmission Date: 20191005
  Serious: Yes (Other)
  Sender: FDA-Public Use
  Company Number: SE-BEH-2019106835

PATIENT
  Sex: Female

DRUGS (1)
  1. HIZENTRA [Suspect]
     Active Substance: HUMAN IMMUNOGLOBULIN G
     Indication: IMMUNODEFICIENCY
     Route: 065

REACTIONS (4)
  - Autoimmune hepatitis [Unknown]
  - Hepatitis B [Unknown]
  - Hepatitis A [Unknown]
  - Suspected transmission of an infectious agent via product [Unknown]

NARRATIVE: CASE EVENT DATE: 201612
